FAERS Safety Report 21748332 (Version 1)
Quarter: 2022Q4

REPORT INFORMATION
  Report Type: Spontaneous
  Country: US (occurrence: None)
  Receive Date: 20221218
  Receipt Date: 20221218
  Transmission Date: 20230113
  Serious: Yes (Other)
  Sender: FDA-Public Use
  Company Number: None

PATIENT
  Age: 3 Year
  Sex: Female
  Weight: 15.8 kg

DRUGS (1)
  1. IBUPROFEN [Suspect]
     Active Substance: IBUPROFEN
     Indication: Accidental overdose
     Dosage: OTHER FREQUENCY : ONCE;?
     Route: 048
     Dates: start: 20221217, end: 20221217

REACTIONS (2)
  - Accidental exposure to product by child [None]
  - Accidental overdose [None]

NARRATIVE: CASE EVENT DATE: 20221217
